FAERS Safety Report 8875462 (Version 1)
Quarter: 2012Q4

REPORT INFORMATION
  Report Type: 
  Country: FR (occurrence: FR)
  Receive Date: 20121023
  Receipt Date: 20121023
  Transmission Date: 20130627
  Serious: Yes (Hospitalization)
  Sender: FDA-Public Use
  Company Number: FR-JNJFOC-20121008033

PATIENT
  Age: 27 Year
  Sex: Male

DRUGS (6)
  1. HALDOL [Suspect]
     Indication: DELUSIONAL DISORDER, UNSPECIFIED TYPE
     Route: 030
  2. HALDOL [Suspect]
     Indication: DELUSIONAL DISORDER, UNSPECIFIED TYPE
     Route: 030
     Dates: start: 20120406, end: 20120516
  3. RISPERDAL [Suspect]
     Indication: PRODUCT USED FOR UNKNOWN INDICATION
     Route: 048
     Dates: start: 20120514
  4. LOXAPAC [Suspect]
     Indication: AGITATION
     Dosage: upon request
     Route: 030
     Dates: start: 20120406, end: 20120509
  5. LYSANXIA [Concomitant]
     Indication: DELUSIONAL DISORDER, UNSPECIFIED TYPE
     Route: 048
     Dates: start: 20120406, end: 20120507
  6. THERALENE [Concomitant]
     Indication: DELUSIONAL DISORDER, UNSPECIFIED TYPE
     Route: 048
     Dates: start: 20120406, end: 20120507

REACTIONS (9)
  - Extrapyramidal disorder [Recovered/Resolved]
  - Goitre [Unknown]
  - Psychomotor retardation [Unknown]
  - Infection [Unknown]
  - Vomiting [Unknown]
  - Glossitis [Unknown]
  - Tongue dry [Unknown]
  - Fungal infection [Unknown]
  - Dysphagia [Recovered/Resolved]
